FAERS Safety Report 5351431-7 (Version None)
Quarter: 2007Q2

REPORT INFORMATION
  Report Type: 
  Country: None (occurrence: None)
  Receive Date: 20070608
  Receipt Date: 20070604
  Transmission Date: 20071010
  Serious: Yes (Other)
  Sender: FDA-Public Use
  Company Number: DE-SHR-DE-2007-017468

PATIENT
  Age: 60 Year
  Sex: Male
  Weight: 65 kg

DRUGS (1)
  1. MAGNEVIST [Suspect]
     Dosage: 13 ML, 1 DOSE
     Route: 042
     Dates: start: 20070508, end: 20070508

REACTIONS (3)
  - ABDOMINAL PAIN [None]
  - NAUSEA [None]
  - PANCREATITIS [None]
